FAERS Safety Report 9380668 (Version 1)
Quarter: 2013Q3

REPORT INFORMATION
  Report Type: Spontaneous
  Country: FR (occurrence: FR)
  Receive Date: 20130702
  Receipt Date: 20130702
  Transmission Date: 20140515
  Serious: Yes (Hospitalization)
  Sender: FDA-Public Use
  Company Number: PHHY2013FR060411

PATIENT
  Age: 59 Year
  Sex: Male

DRUGS (9)
  1. TEGRETOL [Suspect]
     Indication: BIPOLAR DISORDER
     Dosage: UNK UKN, UNK
     Dates: start: 20130215, end: 20130304
  2. PARACETAMOL SANDOZ [Suspect]
     Dosage: UNK UKN, UNK
     Route: 048
     Dates: start: 20130306, end: 20130313
  3. MODIODAL [Suspect]
     Indication: NARCOLEPSY
     Dosage: 100 MG, UNK
     Route: 048
     Dates: start: 201212, end: 20130304
  4. LAROXYL [Suspect]
     Indication: BIPOLAR DISORDER
     Dosage: UNK UKN, UNK
     Route: 048
     Dates: start: 201212, end: 20130304
  5. RULID [Suspect]
     Indication: OROPHARYNGEAL PAIN
     Dosage: UNK UKN, UNK
     Route: 048
     Dates: start: 20130306, end: 20130313
  6. UNSPECIFIED INGREDIENT [Suspect]
     Indication: OROPHARYNGEAL PAIN
     Dosage: UNK UKN, UNK
     Route: 048
     Dates: start: 20130306, end: 20130313
  7. PIVALONE [Suspect]
     Indication: OROPHARYNGEAL PAIN
     Dosage: UNK UKN, UNK
     Route: 045
     Dates: start: 20130306, end: 20130313
  8. PARIET [Concomitant]
     Dosage: UNK UKN, UNK
  9. AERIUS [Concomitant]

REACTIONS (16)
  - Drug reaction with eosinophilia and systemic symptoms [Recovered/Resolved]
  - Pyrexia [Recovered/Resolved]
  - Prurigo [Recovered/Resolved]
  - Rash [Recovered/Resolved]
  - Rash macular [Recovered/Resolved]
  - Pruritus [Recovered/Resolved]
  - Hepatocellular injury [Recovered/Resolved]
  - Renal failure acute [Recovered/Resolved]
  - Inflammation [Recovered/Resolved]
  - Hypertriglyceridaemia [Recovered/Resolved]
  - Erythema [Recovered/Resolved]
  - Skin exfoliation [Recovered/Resolved]
  - Fatigue [Recovered/Resolved]
  - Oropharyngeal pain [Recovered/Resolved]
  - Decreased appetite [Recovered/Resolved]
  - Hypercreatininaemia [Recovered/Resolved]
